FAERS Safety Report 5549480-9 (Version None)
Quarter: 2007Q4

REPORT INFORMATION
  Report Type: 
  Country: None (occurrence: None)
  Receive Date: 20071212
  Receipt Date: 20071205
  Transmission Date: 20080405
  Serious: Yes (Other)
  Sender: FDA-Public Use
  Company Number: PHEH2007US15574

PATIENT
  Sex: Female

DRUGS (3)
  1. TEKTURNA [Suspect]
     Indication: HYPERTENSION
     Dosage: 150 MG, QD
  2. TEKTURNA [Suspect]
     Dosage: 300 MG, QD
  3. BISOPROLOL FUMARATE [Concomitant]

REACTIONS (2)
  - BLOOD PRESSURE INCREASED [None]
  - DEPRESSION [None]
